FAERS Safety Report 17798756 (Version 2)
Quarter: 2020Q3

REPORT INFORMATION
  Report Type: Spontaneous
  Country: US (occurrence: US)
  Receive Date: 20200518
  Receipt Date: 20200826
  Transmission Date: 20201102
  Serious: Yes (Hospitalization, Other)
  Sender: FDA-Public Use
  Company Number: US-PFIZER INC-2020194529

PATIENT
  Age: 64 Year
  Sex: Female

DRUGS (1)
  1. XELJANZ [Suspect]
     Active Substance: TOFACITINIB CITRATE
     Indication: RHEUMATOID ARTHRITIS
     Dosage: 5 MG, 2X/DAY
     Route: 048
     Dates: start: 201906

REACTIONS (6)
  - Pneumonia [Unknown]
  - Condition aggravated [Unknown]
  - Foot fracture [Unknown]
  - Limb mass [Unknown]
  - Pain in extremity [Recovering/Resolving]
  - Trigger finger [Unknown]

NARRATIVE: CASE EVENT DATE: 20200418
